FAERS Safety Report 5395353-4 (Version None)
Quarter: 2007Q3

REPORT INFORMATION
  Report Type: 
  Country: None (occurrence: None)
  Receive Date: 20070724
  Receipt Date: 20070723
  Transmission Date: 20080115
  Serious: Yes (Other)
  Sender: FDA-Public Use
  Company Number: A0665422A

PATIENT
  Age: 27 Year
  Sex: Female

DRUGS (1)
  1. ALLI [Suspect]
     Indication: DRUG USE FOR UNKNOWN INDICATION
     Route: 065
     Dates: start: 20070101

REACTIONS (4)
  - ADVERSE EVENT [None]
  - FEAR [None]
  - FEELING ABNORMAL [None]
  - RECTAL HAEMORRHAGE [None]
